FAERS Safety Report 16383003 (Version 1)
Quarter: 2019Q2

REPORT INFORMATION
  Report Type: Report from Study
  Country: US (occurrence: US)
  Receive Date: 20190603
  Receipt Date: 20190603
  Transmission Date: 20190711
  Serious: Yes (Other)
  Sender: FDA-Public Use
  Company Number: US-PFIZER INC-2019165624

PATIENT
  Age: 59 Year
  Sex: Female

DRUGS (1)
  1. IBRANCE [Suspect]
     Active Substance: PALBOCICLIB
     Indication: BREAST CANCER FEMALE
     Dosage: 125 MG, CYCLIC (DAILY FOR 21 DAYS ON, 7 DAYS OFF)
     Route: 048
     Dates: start: 20190403

REACTIONS (9)
  - Alopecia [Unknown]
  - Hot flush [Unknown]
  - Musculoskeletal chest pain [Unknown]
  - Fall [Unknown]
  - Foot fracture [Unknown]
  - Fatigue [Unknown]
  - Neuropathy peripheral [Unknown]
  - Nasal disorder [Unknown]
  - Dizziness [Unknown]

NARRATIVE: CASE EVENT DATE: 2019
